FAERS Safety Report 16290043 (Version 2)
Quarter: 2022Q2

REPORT INFORMATION
  Report Type: Spontaneous
  Country: US (occurrence: US)
  Receive Date: 20190509
  Receipt Date: 20220603
  Transmission Date: 20220721
  Serious: No
  Sender: FDA-Public Use
  Company Number: US-009507513-1904USA005235

PATIENT
  Age: 30 Year
  Sex: Female

DRUGS (4)
  1. INTRON A [Suspect]
     Active Substance: INTERFERON ALFA-2B
     Indication: Chronic myeloid leukaemia
     Dosage: 3 MILLION UNITS, THREE TIMES A WEEK
  2. INTRON A [Suspect]
     Active Substance: INTERFERON ALFA-2B
     Dosage: 5 MILLION UNITS, THREE TIMES A WEEK
  3. DASATINIB [Concomitant]
     Active Substance: DASATINIB
     Indication: Chronic myeloid leukaemia
     Dosage: UNK
  4. DASATINIB [Concomitant]
     Active Substance: DASATINIB
     Dosage: 100 MILLIGRAM DAILY

REACTIONS (5)
  - Rhinitis [Unknown]
  - Malaise [Unknown]
  - Nausea [Unknown]
  - Maternal exposure during pregnancy [Recovered/Resolved]
  - Product use in unapproved indication [Unknown]
